FAERS Safety Report 8960537 (Version 2)
Quarter: 2013Q1

REPORT INFORMATION
  Report Type: Spontaneous
  Country: PL (occurrence: None)
  Receive Date: 20121203
  Receipt Date: 20130315
  Transmission Date: 20140127
  Serious: Yes (Hospitalization)
  Sender: FDA-Public Use
  Company Number: SPR-00104

PATIENT
  Age: 30 Year
  Sex: Female

DRUGS (2)
  1. ADIPEX RETARD (PHENTERMINE), 45MG [Suspect]
     Indication: OBESITY
     Dosage: ONCE DAILY
     Route: 048
     Dates: start: 20080929, end: 20081003
  2. ANAGRELIDE [Suspect]
     Indication: ESSENTIAL THROMBOCYTHAEMIA

REACTIONS (1)
  - Stress cardiomyopathy [None]
